FAERS Safety Report 23443958 (Version 1)
Quarter: 2024Q1

REPORT INFORMATION
  Report Type: Spontaneous
  Country: GB (occurrence: GB)
  Receive Date: 20240125
  Receipt Date: 20240125
  Transmission Date: 20240409
  Serious: Yes (Hospitalization)
  Sender: FDA-Public Use
  Company Number: None

PATIENT
  Age: 84 Year
  Sex: Male

DRUGS (11)
  1. SPIRONOLACTONE [Suspect]
     Active Substance: SPIRONOLACTONE
     Route: 065
     Dates: start: 20231130
  2. SPIRONOLACTONE [Suspect]
     Active Substance: SPIRONOLACTONE
     Route: 065
     Dates: start: 20231130
  3. FERROUS FUMARATE [Concomitant]
     Active Substance: FERROUS FUMARATE
     Dosage: TIME INTERVAL: 0.33333333 DAYS
  4. EDOXABAN [Concomitant]
     Active Substance: EDOXABAN
     Route: 065
     Dates: start: 20231130
  5. BISOPROLOL [Concomitant]
     Active Substance: BISOPROLOL\BISOPROLOL FUMARATE
     Dosage: MORNING
  6. MACROGOL COMPOUND [Concomitant]
     Dosage: DISSOLVE CONTENTS OF ONE SACHET IN HALF A GLASS
  7. OMEPRAZOLE [Concomitant]
     Active Substance: OMEPRAZOLE
  8. DIGOXIN [Concomitant]
     Active Substance: DIGOXIN
     Dosage: MORNING
  9. FUROSEMIDE [Suspect]
     Active Substance: FUROSEMIDE
     Route: 065
     Dates: start: 20231130
  10. FUROSEMIDE [Suspect]
     Active Substance: FUROSEMIDE
     Route: 065
     Dates: start: 20231130
  11. SIMVASTATIN [Concomitant]
     Active Substance: SIMVASTATIN
     Dosage: NIGHT

REACTIONS (1)
  - Hyponatraemia [Recovered/Resolved]
